FAERS Safety Report 8860404 (Version 1)
Quarter: 2012Q4

REPORT INFORMATION
  Report Type: Report from Study
  Country: CA (occurrence: CA)
  Receive Date: 20121025
  Receipt Date: 20121025
  Transmission Date: 20130627
  Serious: Yes (Other)
  Sender: FDA-Public Use
  Company Number: CA-JNJFOC-20121008983

PATIENT
  Sex: Female
  Weight: 90.72 kg

DRUGS (2)
  1. REMICADE [Suspect]
     Indication: COLITIS ULCERATIVE
     Route: 042
     Dates: end: 201203
  2. REMICADE [Suspect]
     Indication: COLITIS ULCERATIVE
     Route: 042

REACTIONS (5)
  - Colitis ulcerative [Not Recovered/Not Resolved]
  - Musculoskeletal stiffness [Not Recovered/Not Resolved]
  - Pruritus [Not Recovered/Not Resolved]
  - Arthralgia [Not Recovered/Not Resolved]
  - Malaise [Not Recovered/Not Resolved]
